FAERS Safety Report 17564483 (Version 4)
Quarter: 2020Q2

REPORT INFORMATION
  Report Type: Spontaneous
  Country: FR (occurrence: FR)
  Receive Date: 20200320
  Receipt Date: 20200410
  Transmission Date: 20200713
  Serious: Yes (Other)
  Sender: FDA-Public Use
  Company Number: ALC2020FR002373

PATIENT

DRUGS (1)
  1. SKIACOL [Suspect]
     Active Substance: CYCLOPENTOLATE
     Indication: PRODUCT USED FOR UNKNOWN INDICATION
     Dosage: ONE DROP IN EACH EYE, FOLLOWED BY A SECOND DROP INSTILLED 10 MINUTES LATER AND A THIRD DROP 10 MINUT
     Route: 065
     Dates: start: 20200311

REACTIONS (5)
  - Abdominal pain upper [Unknown]
  - Syncope [Recovered/Resolved]
  - Feeling abnormal [Unknown]
  - Overdose [Unknown]
  - Discomfort [Unknown]

NARRATIVE: CASE EVENT DATE: 20200311
